FAERS Safety Report 20768481 (Version 1)
Quarter: 2022Q2

REPORT INFORMATION
  Report Type: Spontaneous
  Country: US (occurrence: US)
  Receive Date: 20220429
  Receipt Date: 20220429
  Transmission Date: 20220721
  Serious: Yes (Other)
  Sender: FDA-Public Use
  Company Number: US-SUN PHARMACEUTICAL INDUSTRIES LTD-2022R1-334512

PATIENT
  Age: 74 Year
  Sex: Male

DRUGS (2)
  1. MORPHINE [Suspect]
     Active Substance: MORPHINE
     Indication: Back pain
     Dosage: UNK (2 ML, 100 MCG)
     Route: 037
  2. IOHEXOL [Concomitant]
     Active Substance: IOHEXOL
     Indication: Back pain
     Dosage: UNK (0.5 ML OF 180 MG/ML)
     Route: 037

REACTIONS (1)
  - Priapism [Recovered/Resolved]
